FAERS Safety Report 9785470 (Version 2)
Quarter: 2014Q1

REPORT INFORMATION
  Report Type: Report from Study
  Country: FR (occurrence: FR)
  Receive Date: 20131227
  Receipt Date: 20140103
  Transmission Date: 20141002
  Serious: Yes (Death, Hospitalization)
  Sender: FDA-Public Use
  Company Number: FR-MILLENNIUM PHARMACEUTICALS, INC.-2013JNJ001409

PATIENT
  Sex: 0

DRUGS (8)
  1. VELCADE [Suspect]
     Indication: PLASMA CELL MYELOMA
     Route: 065
  2. DEXAMETHASONE [Suspect]
     Indication: PLASMA CELL MYELOMA
     Dosage: 40 MG, UNK
     Route: 048
     Dates: start: 20131119, end: 20131122
  3. ACETYLSALICYLATE LYSINE [Concomitant]
     Dosage: 160 MG, UNK
     Route: 048
     Dates: start: 20131122
  4. TRAMADOL [Concomitant]
     Dosage: 200 MG, UNK
     Route: 048
     Dates: start: 20131122
  5. ALPRAZOLAM [Concomitant]
     Dosage: 0.5 MG, UNK
     Route: 048
     Dates: start: 20131122
  6. AMOXICILLIN CLAVULANIC ACID [Concomitant]
     Dosage: 2000 MG, UNK
     Route: 048
     Dates: start: 20131202
  7. METHYLPREDNISOLONE [Concomitant]
     Dosage: 120 MG, UNK
     Route: 042
     Dates: start: 20131203
  8. ZOLPIDEM [Concomitant]
     Indication: SLEEP DISORDER
     Dosage: 1.0 UI/L, UNK
     Route: 048
     Dates: start: 20131205

REACTIONS (2)
  - Jaundice cholestatic [Fatal]
  - Hepatocellular injury [Fatal]
